FAERS Safety Report 9644874 (Version 1)
Quarter: 2013Q4

REPORT INFORMATION
  Report Type: Report from Study
  Country: US (occurrence: US)
  Receive Date: 20131025
  Receipt Date: 20131025
  Transmission Date: 20140711
  Serious: Yes (Hospitalization)
  Sender: FDA-Public Use
  Company Number: PHEH2013US022072

PATIENT
  Age: 76 Year
  Sex: Female

DRUGS (2)
  1. TASIGNA [Suspect]
     Indication: GASTRIC CANCER
     Dosage: 300 MG, BID
     Route: 048
  2. TASIGNA [Suspect]
     Indication: OFF LABEL USE

REACTIONS (3)
  - Fall [Unknown]
  - Loss of consciousness [Unknown]
  - Arrhythmia [Unknown]
